FAERS Safety Report 23601372 (Version 1)
Quarter: 2024Q1

REPORT INFORMATION
  Report Type: Spontaneous
  Country: FR (occurrence: FR)
  Receive Date: 20240306
  Receipt Date: 20240306
  Transmission Date: 20240410
  Serious: Yes (Other)
  Sender: FDA-Public Use
  Company Number: FR-THERAMEX-2023001303

PATIENT
  Sex: Female

DRUGS (3)
  1. METRONIDAZOLE [Suspect]
     Active Substance: METRONIDAZOLE
     Indication: Tonsillitis
     Route: 048
  2. NOMEGESTROL [Suspect]
     Active Substance: NOMEGESTROL
     Indication: Product used for unknown indication
     Dosage: NOMEGESTROL ACETATE
     Route: 048
  3. SPIRAMYCIN [Suspect]
     Active Substance: SPIRAMYCIN
     Indication: Tonsillitis
     Route: 048

REACTIONS (3)
  - Meningioma [Not Recovered/Not Resolved]
  - Dysphagia [Recovered/Resolved]
  - Tongue oedema [Recovered/Resolved]
